FAERS Safety Report 5821278-3 (Version None)
Quarter: 2008Q3

REPORT INFORMATION
  Report Type: 
  Country: None (occurrence: None)
  Receive Date: 20080722
  Receipt Date: 20080722
  Transmission Date: 20090109
  Serious: No
  Sender: FDA-Public Use
  Company Number: None

PATIENT
  Sex: Female

DRUGS (2)
  1. LIBRIUM [Suspect]
     Dosage: LIBRIUM 25 PO
     Route: 048
     Dates: start: 20080719, end: 20080719
  2. TOPAMAX [Suspect]
     Dosage: TOPAMAX 150MG PO
     Route: 048
     Dates: start: 20080719, end: 20080719

REACTIONS (4)
  - BLOOD PRESSURE INCREASED [None]
  - HEART RATE INCREASED [None]
  - RESPIRATORY RATE INCREASED [None]
  - TREMOR [None]
